FAERS Safety Report 16835203 (Version 1)
Quarter: 2019Q3

REPORT INFORMATION
  Report Type: Report from Study
  Country: None (occurrence: CO)
  Receive Date: 20190920
  Receipt Date: 20190920
  Transmission Date: 20191005
  Serious: Yes (Hospitalization, Other)
  Sender: FDA-Public Use
  Company Number: CO-ABBVIE-19K-036-2930181-00

PATIENT
  Age: 65 Year
  Sex: Male
  Weight: 68 kg

DRUGS (1)
  1. HUMIRA [Suspect]
     Active Substance: ADALIMUMAB
     Indication: ANKYLOSING SPONDYLITIS
     Route: 058
     Dates: start: 20090129, end: 20190822

REACTIONS (4)
  - Bile duct obstruction [Recovering/Resolving]
  - Cholelithiasis [Recovering/Resolving]
  - Malignant melanoma [Recovering/Resolving]
  - Pancreatitis [Recovering/Resolving]

NARRATIVE: CASE EVENT DATE: 20190907
